FAERS Safety Report 9898859 (Version 3)
Quarter: 2014Q2

REPORT INFORMATION
  Report Type: Spontaneous
  Country: US (occurrence: US)
  Receive Date: 20140214
  Receipt Date: 20140414
  Transmission Date: 20141212
  Serious: No
  Sender: FDA-Public Use
  Company Number: US-PFIZER INC-2014042642

PATIENT
  Age: 62 Year
  Sex: Female
  Weight: 67.12 kg

DRUGS (15)
  1. LYRICA [Suspect]
     Indication: NEURALGIA
     Dosage: 75 MG, 2X/DAY
     Route: 048
  2. LYRICA [Suspect]
     Indication: NEUROPATHY PERIPHERAL
  3. VITAMIN D [Concomitant]
     Indication: VITAMIN D DEFICIENCY
     Dosage: 50000 UNITS, WEEKLY
  4. VITAMIN D3 [Concomitant]
     Indication: VITAMIN D DEFICIENCY
     Dosage: 2000 UNITS, 2X/DAY
  5. CYMBALTA [Concomitant]
     Dosage: UNK
  6. PRO-AIR [Concomitant]
     Dosage: UNK
  7. LISINOPRIL [Concomitant]
     Dosage: UNK
  8. SYNTHROID [Concomitant]
     Dosage: UNK
  9. ALPRAZOLAM [Concomitant]
     Dosage: UNK
  10. MOBIC [Concomitant]
     Dosage: UNK
  11. HYDROCODONE [Concomitant]
     Dosage: UNK
  12. KEPPRA [Concomitant]
     Dosage: UNK
  13. PREVACID [Concomitant]
     Dosage: UNK
  14. ADVAIR [Concomitant]
     Dosage: UNK
  15. FLEXERIL [Concomitant]
     Dosage: UNK

REACTIONS (1)
  - Vitamin D abnormal [Unknown]
